FAERS Safety Report 9804055 (Version 1)
Quarter: 2014Q1

REPORT INFORMATION
  Report Type: Spontaneous
  Country: VE (occurrence: VE)
  Receive Date: 20140108
  Receipt Date: 20140108
  Transmission Date: 20141002
  Serious: Yes (Life-Threatening)
  Sender: FDA-Public Use
  Company Number: PHHY2014VE001824

PATIENT
  Age: 59 Year
  Sex: Male

DRUGS (2)
  1. FORADIL [Suspect]
     Indication: CHRONIC OBSTRUCTIVE PULMONARY DISEASE
     Dosage: 24 UG, DAILY
     Route: 055
     Dates: end: 201310
  2. NORVIR [Concomitant]
     Dosage: 5 MG, UNK

REACTIONS (1)
  - Asphyxia [Not Recovered/Not Resolved]
